FAERS Safety Report 26206798 (Version 1)
Quarter: 2025Q4

REPORT INFORMATION
  Report Type: Report from Study
  Country: AR (occurrence: AR)
  Receive Date: 20251229
  Receipt Date: 20251229
  Transmission Date: 20260118
  Serious: Yes (Other)
  Sender: AMGEN
  Company Number: AR-AMGEN-ARGSL2025061830

PATIENT
  Age: 61 Year
  Sex: Male

DRUGS (2)
  1. VECTIBIX [Suspect]
     Active Substance: PANITUMUMAB
     Indication: Colorectal cancer
     Dosage: UNK 15 DAYS
     Route: 065
     Dates: start: 20250305
  2. CAPECITABINE [Suspect]
     Active Substance: CAPECITABINE
     Indication: Colorectal cancer
     Dosage: UNK
     Route: 048

REACTIONS (11)
  - Drug-induced liver injury [Unknown]
  - Petechiae [Unknown]
  - Skin infection [Unknown]
  - Acne [Unknown]
  - Conjunctivitis [Unknown]
  - Dry skin [Recovering/Resolving]
  - Rash [Recovering/Resolving]
  - Scab [Recovering/Resolving]
  - Skin fissures [Unknown]
  - Skin atrophy [Unknown]
  - Adverse reaction [Recovering/Resolving]

NARRATIVE: CASE EVENT DATE: 20250101
